FAERS Safety Report 4595416-7 (Version None)
Quarter: 2005Q1

REPORT INFORMATION
  Report Type: 
  Country: None (occurrence: None)
  Receive Date: 20050224
  Receipt Date: 20050208
  Transmission Date: 20050727
  Serious: Yes (Other)
  Sender: FDA-Public Use
  Company Number: US_0408104723

PATIENT
  Age: 35 Year
  Sex: Female

DRUGS (4)
  1. HUMULIN U [Suspect]
     Indication: GESTATIONAL DIABETES
     Dosage: 47 U
     Dates: start: 20040601, end: 20040824
  2. NOVOLIN (INSULIN HUMAN INJECTION, ISOPHANE) [Concomitant]
  3. ACIPHEX [Concomitant]
  4. NOVOLOG [Concomitant]

REACTIONS (5)
  - DRUG EXPOSURE DURING PREGNANCY [None]
  - INJECTION SITE REACTION [None]
  - LUMBAR PUNCTURE HEADACHE [None]
  - NEURALGIA [None]
  - PREMATURE LABOUR [None]
